FAERS Safety Report 4641198-X (Version None)
Quarter: 2005Q2

REPORT INFORMATION
  Report Type: 
  Country: None (occurrence: None)
  Receive Date: 20050419
  Receipt Date: 20050419
  Transmission Date: 20051028
  Serious: Yes (Hospitalization)
  Sender: FDA-Public Use
  Company Number: None

PATIENT
  Age: 7 Month
  Sex: Female
  Weight: 6.4 kg

DRUGS (2)
  1. RILUTEK [Suspect]
     Indication: SPINAL MUSCULAR ATROPHY
     Dosage: 35 MG DAILY ORAL
     Route: 048
     Dates: start: 20050309, end: 20050417
  2. NEBULIZER [Concomitant]

REACTIONS (1)
  - PNEUMONIA [None]
